FAERS Safety Report 10450713 (Version 2)
Quarter: 2014Q3

REPORT INFORMATION
  Report Type: Spontaneous
  Country: DE (occurrence: DE)
  Receive Date: 20140912
  Receipt Date: 20140912
  Transmission Date: 20150326
  Serious: Yes (Life-Threatening, Hospitalization, Other)
  Sender: FDA-Public Use
  Company Number: DE-JNJFOC-20140704337

PATIENT
  Age: 81 Year
  Sex: Male
  Weight: 60 kg

DRUGS (3)
  1. XARELTO [Suspect]
     Active Substance: RIVAROXABAN
     Indication: CEREBROVASCULAR ACCIDENT PROPHYLAXIS
     Route: 048
  2. ASPIRIN. [Suspect]
     Active Substance: ASPIRIN
     Indication: CORONARY ARTERY DISEASE
     Route: 065
  3. XARELTO [Suspect]
     Active Substance: RIVAROXABAN
     Indication: ATRIAL FIBRILLATION
     Route: 048

REACTIONS (6)
  - Skin maceration [Unknown]
  - Spontaneous haemorrhage [Unknown]
  - Haemorrhage [Unknown]
  - Haematoma infection [Unknown]
  - Haemoglobin decreased [Unknown]
  - Haematoma [Unknown]

NARRATIVE: CASE EVENT DATE: 20140614
